FAERS Safety Report 6409062-3 (Version None)
Quarter: 2009Q4

REPORT INFORMATION
  Report Type: 
  Country: None (occurrence: None)
  Receive Date: 20091019
  Receipt Date: 20091007
  Transmission Date: 20100525
  Serious: Yes (Hospitalization, Other)
  Sender: FDA-Public Use
  Company Number: 231634J09USA

PATIENT
  Age: 71 Year
  Sex: Male

DRUGS (4)
  1. REBIF [Suspect]
     Indication: MULTIPLE SCLEROSIS
     Dosage: 44 MCG, 3 IN 1 WEEKS, SUBCUTANEOUS
     Route: 058
     Dates: start: 20041010
  2. NOVALOG INSULIN (INSULIN) [Concomitant]
  3. ACCUPRIL [Concomitant]
  4. LOVASTATIN [Concomitant]

REACTIONS (6)
  - BLOOD URINE PRESENT [None]
  - CORONARY ARTERY OCCLUSION [None]
  - EAR HAEMORRHAGE [None]
  - EPISTAXIS [None]
  - INCORRECT DOSE ADMINISTERED [None]
  - MYOCARDIAL INFARCTION [None]
